FAERS Safety Report 21782167 (Version 1)
Quarter: 2022Q4

REPORT INFORMATION
  Report Type: Spontaneous
  Country: US (occurrence: None)
  Receive Date: 20221223
  Receipt Date: 20221223
  Transmission Date: 20230112
  Serious: Yes (Other)
  Sender: FDA-Public Use
  Company Number: None

PATIENT
  Sex: Male

DRUGS (2)
  1. ACTEMRA [Suspect]
     Active Substance: TOCILIZUMAB
     Indication: Rheumatoid arthritis
     Dosage: 162 MG/0.9ML SUBCUTANEOUS? ?INJECTO 162  MG UNDER THE SKIN (SUBCUTANEOUS INJECTION) ONCE A WEEK
     Route: 058
     Dates: start: 20210211
  2. ACTEMRA [Suspect]
     Active Substance: TOCILIZUMAB
     Dosage: FREQUENCY : WEEKLY;?
     Route: 058
     Dates: start: 20210211

REACTIONS (1)
  - Surgery [None]
